FAERS Safety Report 10423658 (Version 2)
Quarter: 2014Q3

REPORT INFORMATION
  Report Type: Report from Study
  Country: MX (occurrence: MX)
  Receive Date: 20140902
  Receipt Date: 20140902
  Transmission Date: 20150326
  Serious: Yes (Death, Hospitalization, Other)
  Sender: FDA-Public Use
  Company Number: PHHY2014MX035954

PATIENT
  Age: 66 Year
  Sex: Female

DRUGS (6)
  1. DILACORAN [Concomitant]
     Indication: CHRONIC OBSTRUCTIVE PULMONARY DISEASE
     Dosage: UNK DAILY 1/2
  2. ONBREZ [Suspect]
     Active Substance: INDACATEROL
     Dosage: 150 UG, BID
     Route: 055
  3. ONBREZ [Suspect]
     Active Substance: INDACATEROL
     Indication: CHRONIC OBSTRUCTIVE PULMONARY DISEASE
     Dosage: 150 UG, DAILY
     Route: 055
     Dates: start: 20110512
  4. ATROVENT [Concomitant]
     Active Substance: IPRATROPIUM BROMIDE
     Indication: CHRONIC OBSTRUCTIVE PULMONARY DISEASE
     Dosage: UNK DAILY
  5. MIFLONIDE [Suspect]
     Active Substance: BUDESONIDE
     Indication: CHRONIC OBSTRUCTIVE PULMONARY DISEASE
     Dosage: 1 UKN, DAILY
     Route: 055
     Dates: start: 20110512
  6. ASPIRINA [Concomitant]
     Active Substance: ASPIRIN
     Indication: CARDIAC DISORDER
     Dosage: UNK

REACTIONS (5)
  - Asthenia [Unknown]
  - Chronic obstructive pulmonary disease [Unknown]
  - Arrhythmia [Unknown]
  - Respiratory failure [Fatal]
  - Hypertension [Unknown]

NARRATIVE: CASE EVENT DATE: 20140221
